FAERS Safety Report 5744067-7 (Version None)
Quarter: 2008Q2

REPORT INFORMATION
  Report Type: 
  Country: None (occurrence: None)
  Receive Date: 20080516
  Receipt Date: 20080516
  Transmission Date: 20081010
  Serious: Yes (Death, Hospitalization, Disabling)
  Sender: FDA-Public Use
  Company Number: None

PATIENT
  Age: 50 Year
  Sex: Female

DRUGS (1)
  1. LISINOPRIL [Suspect]
     Dosage: PO DAILY
     Route: 048
     Dates: end: 20080221

REACTIONS (7)
  - ANOXIC ENCEPHALOPATHY [None]
  - APALLIC SYNDROME [None]
  - CARDIO-RESPIRATORY ARREST [None]
  - INFLUENZA [None]
  - PHARYNGITIS STREPTOCOCCAL [None]
  - UNRESPONSIVE TO STIMULI [None]
  - UPPER AIRWAY OBSTRUCTION [None]
